FAERS Safety Report 5825009-2 (Version None)
Quarter: 2008Q3

REPORT INFORMATION
  Report Type: 
  Country: None (occurrence: None)
  Receive Date: 20080728
  Receipt Date: 20080716
  Transmission Date: 20090109
  Serious: Yes (Other)
  Sender: FDA-Public Use
  Company Number: MX-PFIZER INC-2008061381

PATIENT
  Sex: Female
  Weight: 39.5 kg

DRUGS (2)
  1. CHANTIX [Suspect]
     Indication: SMOKING CESSATION THERAPY
     Route: 048
  2. OMEPRAZOLE [Concomitant]
     Route: 048

REACTIONS (1)
  - HYPOTENSION [None]
